FAERS Safety Report 8613417-6 (Version None)
Quarter: 2012Q3

REPORT INFORMATION
  Report Type: 
  Country: None (occurrence: None)
  Receive Date: 20120822
  Receipt Date: 20111205
  Transmission Date: 20120928
  Serious: Yes (Other)
  Sender: FDA-Public Use
  Company Number: US-009507513-1208USA007754

PATIENT

DRUGS (6)
  1. VICTRELIS [Suspect]
     Indication: HEPATITIS C
     Dosage: 800 MG, TID
     Dates: start: 20110808
  2. REBETOL [Suspect]
     Dosage: 800 MG, QD
     Dates: start: 20111101, end: 20111224
  3. REBETOL [Suspect]
     Dosage: 600 MG, UNK
     Dates: start: 20111101, end: 20111224
  4. PEGASYS [Suspect]
     Dosage: 135 MICROGRAM, QW
     Dates: start: 20111101, end: 20111224
  5. PEGASYS [Suspect]
     Indication: HEPATITIS C
     Dosage: 180 MICROGRAM, QW
     Dates: start: 20110711
  6. REBETOL [Suspect]
     Indication: HEPATITIS C
     Dosage: 1200, MG, QD
     Route: 048
     Dates: start: 20110711

REACTIONS (17)
  - ANAEMIA [None]
  - DYSPNOEA [None]
  - ASTHENIA [None]
  - FATIGUE [None]
  - MALAISE [None]
  - BLOOD CALCIUM DECREASED [None]
  - SKIN ULCER [None]
  - POLLAKIURIA [None]
  - PARAESTHESIA [None]
  - BACK PAIN [None]
  - BLOOD COUNT [None]
  - WEIGHT DECREASED [None]
  - DRY SKIN [None]
  - RASH [None]
  - VISUAL ACUITY REDUCED [None]
  - WEIGHT INCREASED [None]
  - NAUSEA [None]
